FAERS Safety Report 9691966 (Version 1)
Quarter: 2013Q4

REPORT INFORMATION
  Report Type: Report from Study
  Country: AR (occurrence: AR)
  Receive Date: 20131118
  Receipt Date: 20131118
  Transmission Date: 20140711
  Serious: Yes (Other)
  Sender: FDA-Public Use
  Company Number: AR-ROCHE-1300541

PATIENT
  Age: 58 Year
  Sex: Female
  Weight: 60 kg

DRUGS (2)
  1. AVASTIN [Suspect]
     Indication: OVARIAN CANCER
     Route: 065
     Dates: start: 20130827, end: 20130827
  2. TOPOTECAN [Concomitant]
     Indication: OVARIAN CANCER

REACTIONS (5)
  - Ischaemic stroke [Recovered/Resolved]
  - Diplopia [Recovered/Resolved]
  - Hypertension [Recovered/Resolved]
  - Intestinal perforation [Recovered/Resolved]
  - Strabismus [Recovered/Resolved]
